FAERS Safety Report 7525910-8 (Version None)
Quarter: 2011Q2

REPORT INFORMATION
  Report Type: 
  Country: None (occurrence: None)
  Receive Date: 20110606
  Receipt Date: 20110527
  Transmission Date: 20111010
  Serious: Yes (Other)
  Sender: FDA-Public Use
  Company Number: B0722427A

PATIENT
  Age: 82 Year
  Sex: Female

DRUGS (5)
  1. FORMOTEROL FUMARATE [Suspect]
     Route: 055
  2. FENTANYL [Suspect]
     Route: 065
  3. AMINOPHYLLIN TAB [Suspect]
     Route: 042
  4. BUPIVACAINE HCL [Suspect]
     Route: 065
  5. VENTOLIN HFA [Suspect]
     Route: 055

REACTIONS (4)
  - ARRHYTHMIA [None]
  - HYPOTENSION [None]
  - TACHYCARDIA [None]
  - ATRIAL TACHYCARDIA [None]
